FAERS Safety Report 5703854-1 (Version None)
Quarter: 2008Q2

REPORT INFORMATION
  Report Type: 
  Country: None (occurrence: None)
  Receive Date: 20080408
  Receipt Date: 20080324
  Transmission Date: 20081010
  Serious: Yes (Hospitalization, Other)
  Sender: FDA-Public Use
  Company Number: 2008S1005098

PATIENT
  Age: 43 Year
  Sex: Male

DRUGS (6)
  1. VALIUM [Suspect]
     Indication: ANXIETY
     Dosage: 10 MG; 4 TIMES A DAY
  2. DIAZEPAM [Suspect]
     Indication: ANXIETY
     Dosage: 300 MG;ONCE
  3. MORPHINE [Concomitant]
  4. MS CONTIN [Concomitant]
  5. FENOFIBRATE [Concomitant]
  6. VITAMIN B /00056102/ [Concomitant]

REACTIONS (8)
  - CONDITION AGGRAVATED [None]
  - DIABETES MELLITUS [None]
  - DRUG EFFECT DECREASED [None]
  - DRUG TOLERANCE [None]
  - OVERDOSE [None]
  - PARANOIA [None]
  - PHARMACEUTICAL PRODUCT COUNTERFEIT [None]
  - WEIGHT DECREASED [None]
